FAERS Safety Report 19955082 (Version 5)
Quarter: 2021Q4

REPORT INFORMATION
  Report Type: Spontaneous
  Country: JP (occurrence: JP)
  Receive Date: 20211013
  Receipt Date: 20211229
  Transmission Date: 20220303
  Serious: Yes (Death, Hospitalization, Other)
  Sender: FDA-Public Use
  Company Number: JP-MSD-2109JPN002255J

PATIENT
  Age: 77 Year
  Sex: Female
  Weight: 38 kg

DRUGS (1)
  1. ZOLINZA [Suspect]
     Active Substance: VORINOSTAT
     Dosage: 400 MILLIGRAM, QD
     Route: 048
     Dates: start: 20210531

REACTIONS (6)
  - Hyperglycaemia [Recovering/Resolving]
  - Tumour lysis syndrome [Fatal]
  - Neutrophil count decreased [Fatal]
  - Adult T-cell lymphoma/leukaemia [Fatal]
  - Lung infiltration [Fatal]
  - Respiratory failure [Fatal]

NARRATIVE: CASE EVENT DATE: 20210101
